FAERS Safety Report 10982497 (Version 7)
Quarter: 2015Q2

REPORT INFORMATION
  Report Type: Spontaneous
  Country: US (occurrence: US)
  Receive Date: 20150403
  Receipt Date: 20150625
  Transmission Date: 20150821
  Serious: Yes (Hospitalization, Other)
  Sender: FDA-Public Use
  Company Number: US-009507513-1201USA01967

PATIENT
  Sex: Female
  Weight: 59.41 kg

DRUGS (3)
  1. ALENDRONATE SODIUM. [Suspect]
     Active Substance: ALENDRONATE SODIUM
     Indication: OSTEOPOROSIS
     Dosage: 70 MG, QW
     Route: 048
     Dates: start: 20080211, end: 20100208
  2. FOSAMAX [Suspect]
     Active Substance: ALENDRONATE SODIUM
     Dosage: 70 MG, QW
     Route: 048
     Dates: end: 20100213
  3. FOSAMAX [Suspect]
     Active Substance: ALENDRONATE SODIUM
     Indication: OSTEOPOROSIS
     Dosage: UNK
     Route: 048
     Dates: start: 200003, end: 200112

REACTIONS (31)
  - Surgery [Unknown]
  - Fall [Unknown]
  - Femur fracture [Not Recovered/Not Resolved]
  - Hypertensive heart disease [Unknown]
  - Epicondylitis [Unknown]
  - Hepatic steatosis [Unknown]
  - Gait disturbance [Unknown]
  - Neck pain [Unknown]
  - Hyperlipidaemia [Unknown]
  - Scar pain [Unknown]
  - Tendon disorder [Unknown]
  - Fracture delayed union [Unknown]
  - Humerus fracture [Unknown]
  - Hypercholesterolaemia [Unknown]
  - Bone disorder [Unknown]
  - Drug hypersensitivity [Unknown]
  - Open reduction of fracture [Unknown]
  - Fall [Unknown]
  - Femur fracture [Recovered/Resolved]
  - Polypectomy [Unknown]
  - Insulin-requiring type 2 diabetes mellitus [Unknown]
  - Bunion operation [Unknown]
  - Polyp [Unknown]
  - Vitamin D deficiency [Unknown]
  - Calcium deficiency [Unknown]
  - Type 2 diabetes mellitus [Unknown]
  - Benign neoplasm of thyroid gland [Unknown]
  - Hallucination [Unknown]
  - Abdominal wall haematoma [Unknown]
  - Skin discolouration [Unknown]
  - Adverse drug reaction [Unknown]

NARRATIVE: CASE EVENT DATE: 2000
